FAERS Safety Report 5678925-9 (Version None)
Quarter: 2008Q1

REPORT INFORMATION
  Report Type: 
  Country: None (occurrence: None)
  Receive Date: 20080325
  Receipt Date: 20080312
  Transmission Date: 20080703
  Serious: Yes (Hospitalization)
  Sender: FDA-Public Use
  Company Number: IT-TYCO HEALTHCARE/MALLINCKRODT-T200800540

PATIENT

DRUGS (18)
  1. MORPHINE [Suspect]
     Indication: PAIN
     Dosage: IN THREE DIVIDED BOLUSES DAILY (5 MG BOLUS TID)
     Route: 040
  2. MORPHINE [Suspect]
     Dosage: 100 MG, QD
     Route: 042
  3. MORPHINE [Suspect]
     Dosage: 40 MG, QD
  4. MORPHINE [Suspect]
     Dosage: 100 MG, QD
     Route: 042
  5. MORPHINE [Suspect]
     Dosage: 50 MG, QD
     Route: 042
  6. TACROLIMUS [Suspect]
     Indication: IMMUNOSUPPRESSANT DRUG THERAPY
     Dosage: TARGET PLASMA CONCENTRATION OF 15-20 NG/ML
  7. AMINOGLYCOSIDE ANTIBACTERIALS [Concomitant]
     Route: 042
  8. CORTICOSTEROIDS [Concomitant]
     Route: 042
  9. GABAPENTIN [Concomitant]
     Dosage: 1800 MG, QD
  10. GABAPENTIN [Concomitant]
     Dosage: 600 UNK, UNK
     Route: 048
  11. LORAZEPAM [Concomitant]
     Dosage: 2 MG, QD
  12. AMITRIPTYLINE HCL [Concomitant]
     Dosage: 20 MG, QD
  13. METHADON HCL TAB [Concomitant]
     Indication: PAIN
     Dosage: 20 MG, QD
     Route: 048
  14. MIDAZOLAM HCL [Concomitant]
     Dosage: .1 MG/KG
     Route: 030
  15. CLONIDINE [Concomitant]
     Dosage: 3 UG/KG, UNK
  16. CLONIDINE [Concomitant]
     Dosage: 2 UG/KG/HR CONTIUNOUS IV INFUSION
     Route: 042
  17. RANITIDINE [Concomitant]
     Dosage: 3 MG/KG
     Route: 040
  18. OMEPRAZOLE [Concomitant]
     Dosage: 40 MG, QD
     Route: 040

REACTIONS (1)
  - HYPERAESTHESIA [None]
